FAERS Safety Report 25794031 (Version 4)
Quarter: 2025Q4

REPORT INFORMATION
  Report Type: Report from Study
  Country: CA (occurrence: CA)
  Receive Date: 20250912
  Receipt Date: 20251019
  Transmission Date: 20260118
  Serious: Yes (Hospitalization)
  Sender: ABBVIE
  Company Number: CA-ABBVIE-6452087

PATIENT
  Age: 79 Year
  Sex: Female

DRUGS (2)
  1. RINVOQ [Suspect]
     Active Substance: UPADACITINIB
     Indication: Rheumatoid arthritis
     Dosage: FORM STRENGTH: 15 MILLIGRAM
     Route: 048
  2. RINVOQ [Suspect]
     Active Substance: UPADACITINIB
     Indication: Rheumatoid arthritis
     Dosage: FORM STRENGTH: 15 MILLIGRAM
     Route: 048
     Dates: start: 20250912

REACTIONS (12)
  - Ear pain [Not Recovered/Not Resolved]
  - Swelling face [Recovering/Resolving]
  - Blood sodium abnormal [Unknown]
  - Ear infection bacterial [Unknown]
  - Spinal stenosis [Unknown]
  - Gait disturbance [Unknown]
  - Speech disorder [Unknown]
  - Mouth ulceration [Unknown]
  - COVID-19 [Unknown]
  - Rheumatoid arthritis [Unknown]
  - Herpes zoster [Unknown]
  - Acne [Unknown]

NARRATIVE: CASE EVENT DATE: 20250101
